FAERS Safety Report 21354946 (Version 1)
Quarter: 2022Q3

REPORT INFORMATION
  Report Type: Report from Study
  Country: FR (occurrence: FR)
  Receive Date: 20220920
  Receipt Date: 20220920
  Transmission Date: 20221027
  Serious: Yes (Hospitalization)
  Sender: FDA-Public Use
  Company Number: FR-SERVIER-S22009443

PATIENT

DRUGS (7)
  1. PEGASPARGASE [Suspect]
     Active Substance: PEGASPARGASE
     Indication: Acute lymphocytic leukaemia
     Dosage: 2100 IU ON D4
     Route: 042
     Dates: start: 20220505, end: 20220505
  2. VINCRISTINE [Suspect]
     Active Substance: VINCRISTINE
     Indication: Acute lymphocytic leukaemia
     Dosage: 1.3 MG ON D1, D8, D15
     Route: 042
     Dates: start: 20220502, end: 20220516
  3. DOXORUBICIN [Suspect]
     Active Substance: DOXORUBICIN
     Indication: Acute lymphocytic leukaemia
     Dosage: 21 MG ON D1, D8, D15
     Route: 042
     Dates: start: 20220502, end: 20220516
  4. DEXAMETHASONE [Suspect]
     Active Substance: DEXAMETHASONE
     Indication: Acute lymphocytic leukaemia
     Dosage: 8.1 MG ON D1-D7, D15-D21
     Route: 048
     Dates: start: 20220502, end: 20220522
  5. METHOTREXATE [Suspect]
     Active Substance: METHOTREXATE
     Indication: Acute lymphocytic leukaemia
     Dosage: 12 MG ON D4
     Route: 037
     Dates: start: 20220505, end: 20220505
  6. CYTARABINE [Suspect]
     Active Substance: CYTARABINE
     Indication: Acute lymphocytic leukaemia
     Dosage: 30 MG ON D4
     Route: 037
     Dates: start: 20220505, end: 20220505
  7. HYDROCORTISONE [Suspect]
     Active Substance: HYDROCORTISONE
     Indication: Acute lymphocytic leukaemia
     Dosage: 15 MG ON D4
     Route: 037
     Dates: start: 20220505, end: 20220505

REACTIONS (2)
  - Febrile bone marrow aplasia [Not Recovered/Not Resolved]
  - Escherichia bacteraemia [Not Recovered/Not Resolved]

NARRATIVE: CASE EVENT DATE: 20220501
